FAERS Safety Report 15187163 (Version 2)
Quarter: 2019Q1

REPORT INFORMATION
  Report Type: Report from Study
  Country: US (occurrence: US)
  Receive Date: 20180723
  Receipt Date: 20190130
  Transmission Date: 20190417
  Serious: No
  Sender: FDA-Public Use
  Company Number: US-EXELIXIS-CABO-17011521

PATIENT
  Age: 75 Year
  Sex: Female

DRUGS (9)
  1. AZITHROMYCIN ANHYDROUS. [Concomitant]
     Active Substance: AZITHROMYCIN ANHYDROUS
  2. COMPAZINE [Concomitant]
     Active Substance: PROCHLORPERAZINE MALEATE
  3. CABOMETYX [Suspect]
     Active Substance: CABOZANTINIB S-MALATE
     Indication: MALIGNANT NEOPLASM OF RENAL PELVIS
     Dosage: 60 MG, QD
     Route: 048
     Dates: start: 201710, end: 201711
  4. HYDROCODONE [Concomitant]
     Active Substance: HYDROCODONE
  5. FENOFIBRATE. [Concomitant]
     Active Substance: FENOFIBRATE
  6. IMODIUM [Concomitant]
     Active Substance: LOPERAMIDE HYDROCHLORIDE
  7. CYANOCOBALAMIN. [Concomitant]
     Active Substance: CYANOCOBALAMIN
  8. FERROUS SULFATE. [Concomitant]
     Active Substance: FERROUS SULFATE
  9. LEVOTHYROXINE. [Concomitant]
     Active Substance: LEVOTHYROXINE

REACTIONS (8)
  - Musculoskeletal chest pain [Unknown]
  - Oropharyngeal pain [Unknown]
  - Blood pressure increased [Unknown]
  - Cardiac disorder [Unknown]
  - Epistaxis [Unknown]
  - Erythema [Unknown]
  - Thrombosis [Unknown]
  - Toothache [Unknown]

NARRATIVE: CASE EVENT DATE: 20171129
